FAERS Safety Report 20000695 (Version 2)
Quarter: 2021Q4

REPORT INFORMATION
  Report Type: Spontaneous
  Country: US (occurrence: US)
  Receive Date: 20211027
  Receipt Date: 20211104
  Transmission Date: 20220303
  Serious: Yes (Death)
  Sender: FDA-Public Use
  Company Number: US-ABBVIE-21K-163-4137512-00

PATIENT
  Sex: Male

DRUGS (3)
  1. IMBRUVICA [Suspect]
     Active Substance: IBRUTINIB
     Indication: Richter^s syndrome
     Route: 048
     Dates: start: 20191121, end: 202003
  2. AXICABTAGENE CILOLEUCEL [Suspect]
     Active Substance: AXICABTAGENE CILOLEUCEL
     Indication: Lymphoma transformation
     Route: 065
     Dates: start: 202003
  3. VENETOCLAX [Concomitant]
     Active Substance: VENETOCLAX
     Indication: Richter^s syndrome
     Dates: start: 201912

REACTIONS (2)
  - Neurotoxicity [Fatal]
  - Drug ineffective [Unknown]

NARRATIVE: CASE EVENT DATE: 20200101
